FAERS Safety Report 6669682-8 (Version None)
Quarter: 2010Q2

REPORT INFORMATION
  Report Type: 
  Country: None (occurrence: None)
  Receive Date: 20100406
  Receipt Date: 20100331
  Transmission Date: 20101027
  Serious: Yes (Death)
  Sender: FDA-Public Use
  Company Number: US-GILEAD-2010-0028096

PATIENT
  Sex: Female
  Weight: 47.67 kg

DRUGS (17)
  1. LETAIRIS [Suspect]
     Indication: PULMONARY ARTERIAL HYPERTENSION
     Route: 048
     Dates: start: 20080304
  2. REVATIO [Concomitant]
  3. DIOVAN [Concomitant]
  4. CARDIZEM [Concomitant]
  5. CATAPRES [Concomitant]
  6. OXYGEN [Concomitant]
  7. PROTONIX [Concomitant]
  8. PREDNISONE TAB [Concomitant]
  9. METOCLOPRAMIDE [Concomitant]
  10. FLUCONAZOLE [Concomitant]
  11. ACTONEL [Concomitant]
  12. NITRO-BID [Concomitant]
  13. ASPIRIN [Concomitant]
  14. CALCIUM [Concomitant]
  15. ADVAIR DISKUS 100/50 [Concomitant]
  16. MULTI-VITAMIN [Concomitant]
  17. CARBAMAZEPINE [Concomitant]

REACTIONS (1)
  - DEATH [None]
